FAERS Safety Report 12848928 (Version 2)
Quarter: 2016Q4

REPORT INFORMATION
  Report Type: Report from Study
  Country: US (occurrence: US)
  Receive Date: 20161014
  Receipt Date: 20161109
  Transmission Date: 20170207
  Serious: Yes (Hospitalization)
  Sender: FDA-Public Use
  Company Number: US-ACTELION-A-NJ2014-110334

PATIENT
  Age: 43 Year
  Sex: Female

DRUGS (3)
  1. LETAIRIS [Concomitant]
     Active Substance: AMBRISENTAN
  2. ADCIRCA [Concomitant]
     Active Substance: TADALAFIL
  3. VELETRI [Suspect]
     Active Substance: EPOPROSTENOL
     Indication: PULMONARY ARTERIAL HYPERTENSION
     Dosage: 16 NG/KG, PER MIN
     Route: 042
     Dates: start: 20141201

REACTIONS (15)
  - Dyspnoea [Unknown]
  - Flushing [Unknown]
  - Blood creatinine increased [Unknown]
  - Bronchitis [Unknown]
  - Headache [Not Recovered/Not Resolved]
  - Urine output decreased [Unknown]
  - Mental status changes [Unknown]
  - Oxygen consumption increased [Unknown]
  - Loss of consciousness [Unknown]
  - Hypotension [Unknown]
  - Catheter site erythema [Unknown]
  - Diarrhoea [Unknown]
  - Renal disorder [Unknown]
  - Device alarm issue [Recovered/Resolved]
  - Pain in jaw [Unknown]
